FAERS Safety Report 21604834 (Version 1)
Quarter: 2022Q4

REPORT INFORMATION
  Report Type: Spontaneous
  Country: PR (occurrence: PR)
  Receive Date: 20221116
  Receipt Date: 20221116
  Transmission Date: 20230113
  Serious: Yes (Hospitalization, Other)
  Sender: FDA-Public Use
  Company Number: PR-BRISTOL-MYERS SQUIBB COMPANY-2022-136137

PATIENT
  Age: 72 Year
  Sex: Female
  Weight: 72 kg

DRUGS (1)
  1. REVLIMID [Suspect]
     Active Substance: LENALIDOMIDE
     Indication: Plasma cell myeloma
     Dosage: FREQUENCY- DAILY FOR 14 DAYS.
     Route: 048
     Dates: start: 20181029, end: 20221003

REACTIONS (1)
  - Osteonecrosis of jaw [Recovered/Resolved]

NARRATIVE: CASE EVENT DATE: 20221004
